FAERS Safety Report 4373489-4 (Version None)
Quarter: 2004Q1

REPORT INFORMATION
  Report Type: 
  Country: None (occurrence: None)
  Receive Date: 20040305
  Receipt Date: 20031117
  Transmission Date: 20041129
  Serious: Yes (Other)
  Sender: FDA-Public Use
  Company Number: 2003UW15141

PATIENT
  Age: 59 Year
  Sex: Female
  Weight: 58.9676 kg

DRUGS (5)
  1. CRESTOR [Suspect]
     Indication: BLOOD CHOLESTEROL INCREASED
  2. NORVASC [Concomitant]
  3. PREMARIN [Concomitant]
  4. ACIDFLEX [Concomitant]
  5. PAXIL [Concomitant]

REACTIONS (3)
  - ANXIETY [None]
  - FEELING JITTERY [None]
  - PANIC ATTACK [None]
